FAERS Safety Report 13451554 (Version 1)
Quarter: 2017Q2

REPORT INFORMATION
  Report Type: Spontaneous
  Country: DE (occurrence: DE)
  Receive Date: 20170418
  Receipt Date: 20170418
  Transmission Date: 20170830
  Serious: Yes (Other)
  Sender: FDA-Public Use
  Company Number: DE-TORRENT-00006368

PATIENT
  Age: 60 Year
  Sex: Female
  Weight: 110 kg

DRUGS (3)
  1. FLUTIFORM [Concomitant]
     Active Substance: FLUTICASONE PROPIONATE\FORMOTEROL FUMARATE
  2. VOTUM 20 MG [Concomitant]
     Active Substance: OLMESARTAN MEDOXOMIL
  3. MOXIFLOXACIN. [Suspect]
     Active Substance: MOXIFLOXACIN

REACTIONS (4)
  - Blood pressure decreased [Recovered/Resolved]
  - Dyspnoea [Recovered/Resolved]
  - Visual impairment [Recovered/Resolved]
  - Nausea [Recovered/Resolved]

NARRATIVE: CASE EVENT DATE: 20161209
